FAERS Safety Report 6614068-5 (Version None)
Quarter: 2010Q1

REPORT INFORMATION
  Report Type: 
  Country: None (occurrence: None)
  Receive Date: 20100304
  Receipt Date: 20100222
  Transmission Date: 20100710
  Serious: Yes (Hospitalization, Other)
  Sender: FDA-Public Use
  Company Number: PHEH2007US10963

PATIENT
  Sex: Male

DRUGS (10)
  1. ZOMETA [Suspect]
  2. CARDIZEM [Concomitant]
  3. METFORMIN HYDROCHLORIDE [Concomitant]
  4. CANDIDA-LOKALICID [Concomitant]
  5. TAXOTERE [Concomitant]
  6. PERIDEX [Concomitant]
  7. AUGMENTIN                               /SCH/ [Concomitant]
  8. CHEMOTHERAPEUTICS NOS [Concomitant]
  9. RADIATION THERAPY [Concomitant]
  10. DEXAMETHASONE 4MG TAB [Concomitant]

REACTIONS (31)
  - ANHEDONIA [None]
  - ANXIETY [None]
  - BONE DENSITY DECREASED [None]
  - BONE DISORDER [None]
  - DEFORMITY [None]
  - DEPRESSION [None]
  - DERMATITIS CONTACT [None]
  - DISABILITY [None]
  - DIVERTICULUM [None]
  - EMOTIONAL DISTRESS [None]
  - GASTRITIS [None]
  - GASTROINTESTINAL HAEMORRHAGE [None]
  - GINGIVAL SWELLING [None]
  - INFECTION [None]
  - MASTICATION DISORDER [None]
  - OPEN REDUCTION OF FRACTURE [None]
  - OSTEOARTHRITIS [None]
  - OSTEONECROSIS [None]
  - OVERDOSE [None]
  - PAIN [None]
  - PALPITATIONS [None]
  - PRIMARY SEQUESTRUM [None]
  - PULMONARY EMBOLISM [None]
  - RENAL CYST [None]
  - SQUAMOUS CELL CARCINOMA [None]
  - STOMATITIS [None]
  - SYNCOPE [None]
  - TOOTH ABSCESS [None]
  - TOOTH EXTRACTION [None]
  - TOOTH FRACTURE [None]
  - WALKING AID USER [None]
